FAERS Safety Report 9643056 (Version 1)
Quarter: 2013Q4

REPORT INFORMATION
  Report Type: Spontaneous
  Country: DE (occurrence: DE)
  Receive Date: 20131024
  Receipt Date: 20131024
  Transmission Date: 20140711
  Serious: Yes (Congenital Anomaly)
  Sender: FDA-Public Use
  Company Number: DE-SA-2013SA103991

PATIENT
  Age: 1 Day
  Sex: Female
  Weight: 2.62 kg

DRUGS (1)
  1. STILNOX [Suspect]
     Indication: MATERNAL EXPOSURE TIMING UNSPECIFIED
     Dosage: 8 FOLD DOSIS (USUAL DAILY DOSIS 10MG/D)
     Route: 064
     Dates: start: 200802, end: 200810

REACTIONS (3)
  - Pulmonary valve incompetence [Unknown]
  - Exposure during pregnancy [Unknown]
  - Congenital tricuspid valve incompetence [Unknown]
